FAERS Safety Report 21313694 (Version 1)
Quarter: 2022Q3

REPORT INFORMATION
  Report Type: Other
  Country: US (occurrence: US)
  Receive Date: 20220909
  Receipt Date: 20220909
  Transmission Date: 20221026
  Serious: No
  Sender: FDA-Public Use
  Company Number: US-LEADIANT BIOSCIENCES INC-2021STPI000283

PATIENT
  Sex: Male

DRUGS (1)
  1. MATULANE [Suspect]
     Active Substance: PROCARBAZINE HYDROCHLORIDE
     Indication: Brain neoplasm
     Dosage: 150 MILLIGRAM, DAILY ON DAYS 8-21
     Route: 048
     Dates: start: 20210301, end: 20210921

REACTIONS (3)
  - Drug ineffective [Unknown]
  - Photophobia [Unknown]
  - Blood pressure increased [Unknown]
